FAERS Safety Report 21413461 (Version 1)
Quarter: 2022Q4

REPORT INFORMATION
  Report Type: Spontaneous
  Country: US (occurrence: US)
  Receive Date: 20221006
  Receipt Date: 20221006
  Transmission Date: 20230113
  Serious: No
  Sender: FDA-Public Use
  Company Number: US-BION-010864

PATIENT

DRUGS (1)
  1. IMODIUM A-D [Suspect]
     Active Substance: LOPERAMIDE HYDROCHLORIDE
     Indication: Anal incontinence
     Dosage: THREE TIMES A WEEK

REACTIONS (3)
  - Constipation [Unknown]
  - Product prescribing error [Not Recovered/Not Resolved]
  - Product use in unapproved indication [Not Recovered/Not Resolved]
